FAERS Safety Report 8756578 (Version 1)
Quarter: 2012Q4

REPORT INFORMATION
  Report Type: 
  Country: CH (occurrence: CH)
  Receive Date: 20120828
  Receipt Date: 20120828
  Transmission Date: 20130627
  Serious: Yes (Hospitalization, Other)
  Sender: FDA-Public Use
  Company Number: CH-009507513-1208CHE007774

PATIENT

DRUGS (2)
  1. REMERON [Suspect]
     Dosage: 4 DF, Once
     Route: 048
     Dates: start: 20120330, end: 20120330
  2. ALCOHOL [Suspect]
     Dosage: UNK, Once
     Route: 048
     Dates: start: 20120330, end: 20120330

REACTIONS (5)
  - Suicide attempt [Recovered/Resolved]
  - Tachycardia [Unknown]
  - Agitation [Unknown]
  - Somnolence [Recovered/Resolved]
  - Intentional overdose [Unknown]
